FAERS Safety Report 5604932-8 (Version None)
Quarter: 2008Q1

REPORT INFORMATION
  Report Type: 
  Country: None (occurrence: None)
  Receive Date: 20080128
  Receipt Date: 20080118
  Transmission Date: 20080703
  Serious: No
  Sender: FDA-Public Use
  Company Number: US-BOEHRINGER INGELHEIM PHARMACEUTICALS, INC.-2008-BP-00912BP

PATIENT
  Sex: Male

DRUGS (5)
  1. MIRAPEX [Suspect]
     Indication: DYSKINESIA
     Route: 048
     Dates: start: 20071101
  2. M.V.I. [Concomitant]
  3. ASPIRIN [Concomitant]
  4. ZETIA [Concomitant]
     Indication: BLOOD CHOLESTEROL INCREASED
  5. GLUCOSAMINE [Concomitant]

REACTIONS (1)
  - HYPOPNOEA [None]
